FAERS Safety Report 21027862 (Version 1)
Quarter: 2022Q2

REPORT INFORMATION
  Report Type: Spontaneous
  Country: US (occurrence: None)
  Receive Date: 20220630
  Receipt Date: 20220630
  Transmission Date: 20220721
  Serious: No
  Sender: FDA-Public Use
  Company Number: 2022A235251

PATIENT
  Sex: Female
  Weight: 78.9 kg

DRUGS (1)
  1. FARXIGA [Suspect]
     Active Substance: DAPAGLIFLOZIN PROPANEDIOL
     Indication: Cardiac disorder
     Route: 048
     Dates: start: 20220615

REACTIONS (4)
  - Sleep disorder [Unknown]
  - Rash [Unknown]
  - Erythema [Unknown]
  - Off label use [Unknown]
